FAERS Safety Report 7001850-8 (Version None)
Quarter: 2010Q3

REPORT INFORMATION
  Report Type: 
  Country: None (occurrence: None)
  Receive Date: 20100920
  Receipt Date: 20070605
  Transmission Date: 20110219
  Serious: Yes (Other)
  Sender: FDA-Public Use
  Company Number: US-ASTRAZENECA-2006UW11924

PATIENT
  Age: 15458 Day
  Sex: Female
  Weight: 94.8 kg

DRUGS (21)
  1. SEROQUEL [Suspect]
     Indication: BIPOLAR DISORDER
     Route: 048
     Dates: start: 20000707, end: 20011009
  2. SEROQUEL [Suspect]
     Indication: DEPRESSION
     Route: 048
     Dates: start: 20000707, end: 20011009
  3. SEROQUEL [Suspect]
     Dosage: 25 MG - 100 MG
     Route: 048
     Dates: start: 20000707
  4. SEROQUEL [Suspect]
     Dosage: 25 MG - 100 MG
     Route: 048
     Dates: start: 20000707
  5. PAXIL [Concomitant]
     Dosage: 20 MG - 40 MG
     Dates: start: 20001019
  6. ZOLOFT [Concomitant]
     Dates: start: 20060825
  7. DEPAKOTE [Concomitant]
     Dates: start: 20000707
  8. PROZAC [Concomitant]
     Dates: start: 20000707
  9. DIFLUCAN [Concomitant]
     Dates: start: 20010503
  10. CLARITIN [Concomitant]
     Dates: start: 20010513
  11. RANITIDINE [Concomitant]
  12. PROMETHAZINE [Concomitant]
     Dates: start: 20010524
  13. PROPOXYPHENE NAPSYLATE AND ACETAMINOPHEN [Concomitant]
     Dates: start: 20010524
  14. IPRATROPIUM BR [Concomitant]
     Dates: start: 20040524
  15. PRILOSEC [Concomitant]
     Dates: start: 20040527
  16. EVISTA [Concomitant]
     Dates: start: 20040524
  17. TEMAZEPAM [Concomitant]
     Dates: start: 20040518
  18. LORTAB [Concomitant]
     Dates: start: 20070417
  19. VYTORIN [Concomitant]
     Dosage: 10 MG - 40 MG
     Dates: start: 20070424
  20. PREDNISOLONE [Concomitant]
  21. VALTREX [Concomitant]
     Dates: start: 20070904

REACTIONS (2)
  - DIABETES MELLITUS [None]
  - DIABETES MELLITUS INADEQUATE CONTROL [None]
